FAERS Safety Report 5683553-5 (Version None)
Quarter: 2008Q1

REPORT INFORMATION
  Report Type: 
  Country: None (occurrence: None)
  Receive Date: 20080326
  Receipt Date: 20080319
  Transmission Date: 20080703
  Serious: Yes (Disabling, Other)
  Sender: FDA-Public Use
  Company Number: 2008SP005642

PATIENT
  Age: 48 Year
  Sex: Male
  Weight: 64 kg

DRUGS (10)
  1. TEMODAL [Suspect]
     Indication: BRAIN NEOPLASM
     Dosage: 260 MG; QD; PO, 340 MG; QD; PO
     Route: 048
     Dates: start: 20061118, end: 20061122
  2. TEMODAL [Suspect]
     Indication: NEOPLASM RECURRENCE
     Dosage: 260 MG; QD; PO, 340 MG; QD; PO
     Route: 048
     Dates: start: 20061118, end: 20061122
  3. TEMODAL [Suspect]
     Indication: BRAIN NEOPLASM
     Dosage: 260 MG; QD; PO, 340 MG; QD; PO
     Route: 048
     Dates: start: 20061216, end: 20070418
  4. TEMODAL [Suspect]
     Indication: NEOPLASM RECURRENCE
     Dosage: 260 MG; QD; PO, 340 MG; QD; PO
     Route: 048
     Dates: start: 20061216, end: 20070418
  5. KYTRIL [Concomitant]
  6. DEPAKENE [Concomitant]
  7. FAMOTIDINE [Concomitant]
  8. VOLTAREN [Concomitant]
  9. LENDORMIN [Concomitant]
  10. FERON [Concomitant]

REACTIONS (2)
  - DEAFNESS [None]
  - HYDROCEPHALUS [None]
